FAERS Safety Report 23795639 (Version 2)
Quarter: 2024Q2

REPORT INFORMATION
  Report Type: Spontaneous
  Country: US (occurrence: US)
  Receive Date: 20240429
  Receipt Date: 20240621
  Transmission Date: 20240716
  Serious: No
  Sender: FDA-Public Use
  Company Number: US-MYLANLABS-2024M1033665

PATIENT
  Age: 53 Year
  Sex: Male
  Weight: 72.57 kg

DRUGS (2)
  1. BREYNA [Suspect]
     Active Substance: BUDESONIDE\FORMOTEROL FUMARATE
     Indication: Asthma
     Dosage: 320/9 MICROGRAM, BID (2 PUFFS A DAY, TWICE A DAY)
     Route: 055
     Dates: start: 202311, end: 20240411
  2. SINGULAIR [Concomitant]
     Active Substance: MONTELUKAST SODIUM
     Dosage: 10 MILLIGRAM
     Route: 065

REACTIONS (4)
  - Asthma [Recovering/Resolving]
  - Drug ineffective [Unknown]
  - General physical health deterioration [Recovering/Resolving]
  - Product substitution issue [Unknown]
